FAERS Safety Report 23301309 (Version 1)
Quarter: 2023Q4

REPORT INFORMATION
  Report Type: Spontaneous
  Country: DE (occurrence: DE)
  Receive Date: 20231215
  Receipt Date: 20231215
  Transmission Date: 20240109
  Serious: Yes (Life-Threatening)
  Sender: FDA-Public Use
  Company Number: DE-ANIPHARMA-2023-DE-000184

PATIENT
  Age: 65 Year
  Sex: Male
  Weight: 83 kg

DRUGS (1)
  1. CANDESARTAN CILEXETIL [Suspect]
     Active Substance: CANDESARTAN CILEXETIL
     Indication: Hypertension
     Dosage: 1 DF DAILY
     Route: 048
     Dates: start: 20230929, end: 20231002

REACTIONS (6)
  - Drug ineffective [Unknown]
  - Product quality issue [Unknown]
  - Headache [Recovered/Resolved]
  - Dizziness [Recovered/Resolved]
  - Malaise [Recovered/Resolved]
  - Respiratory rate increased [Unknown]

NARRATIVE: CASE EVENT DATE: 20231002
